FAERS Safety Report 12787908 (Version 1)
Quarter: 2016Q3

REPORT INFORMATION
  Report Type: Spontaneous
  Country: US (occurrence: US)
  Receive Date: 20160928
  Receipt Date: 20160928
  Transmission Date: 20161109
  Serious: Yes (Death)
  Sender: FDA-Public Use
  Company Number: US-PAR PHARMACEUTICAL COMPANIES-2016SCPR015313

PATIENT

DRUGS (1)
  1. ADRENALIN CHLORIDE SOLUTION [Suspect]
     Active Substance: EPINEPHRINE HYDROCHLORIDE
     Indication: BLOOD PRESSURE ABNORMAL
     Dosage: 1:1000 NASAL SOLUTION WAS ADDED TO 250 ML IV NORMAL SALINE
     Route: 042

REACTIONS (3)
  - Death [Fatal]
  - Wrong drug administered [Unknown]
  - Incorrect route of drug administration [Unknown]
